FAERS Safety Report 8329208-X (Version None)
Quarter: 2012Q2

REPORT INFORMATION
  Report Type: 
  Country: None (occurrence: None)
  Receive Date: 20120502
  Receipt Date: 20120203
  Transmission Date: 20120825
  Serious: No
  Sender: FDA-Public Use
  Company Number: US-ASTRAZENECA-2012SE08094

PATIENT
  Age: 65 Year
  Sex: Female
  Weight: 76.2 kg

DRUGS (3)
  1. FASLODEX [Suspect]
     Indication: BREAST CANCER
     Route: 030
     Dates: start: 20110701
  2. SYNTHROID [Concomitant]
  3. XGEVA [Concomitant]
     Indication: OSTEOPOROSIS PROPHYLAXIS

REACTIONS (5)
  - HUNGER [None]
  - INFECTION [None]
  - ABDOMINAL DISCOMFORT [None]
  - PLATELET COUNT DECREASED [None]
  - WEIGHT INCREASED [None]
